FAERS Safety Report 7037135-3 (Version None)
Quarter: 2010Q4

REPORT INFORMATION
  Report Type: 
  Country: None (occurrence: None)
  Receive Date: 20101011
  Receipt Date: 20100927
  Transmission Date: 20110411
  Serious: Yes (Hospitalization, Other)
  Sender: FDA-Public Use
  Company Number: MX-ELI_LILLY_AND_COMPANY-MX201009007601

PATIENT
  Age: 76 Year
  Sex: Female
  Weight: 112 kg

DRUGS (4)
  1. FORTEO [Suspect]
     Indication: SPINAL FRACTURE
     Dosage: 20 UG, DAILY (1/D)
     Route: 058
     Dates: start: 20091101, end: 20100901
  2. DICAL /00944201/ [Concomitant]
     Dosage: UNK, UNKNOWN
     Route: 065
     Dates: start: 20090101
  3. VITAMIN D [Concomitant]
     Dosage: UNK, UNKNOWN
     Route: 065
  4. BONIVA [Concomitant]
     Dosage: UNK, UNKNOWN
     Route: 065
     Dates: start: 20100601

REACTIONS (4)
  - BLOOD PRESSURE FLUCTUATION [None]
  - CARDIAC FIBRILLATION [None]
  - SELF-MEDICATION [None]
  - SPINAL COMPRESSION FRACTURE [None]
